FAERS Safety Report 4525529-7 (Version None)
Quarter: 2004Q4

REPORT INFORMATION
  Report Type: 
  Country: None (occurrence: None)
  Receive Date: 20041208
  Receipt Date: 20041122
  Transmission Date: 20050328
  Serious: Yes (Hospitalization)
  Sender: FDA-Public Use
  Company Number: WAES 0411USA03928

PATIENT
  Age: 56 Year
  Sex: Female

DRUGS (7)
  1. TAB ETORICOXIB [Suspect]
     Indication: OSTEOARTHRITIS
     Dosage: 30 MG/DAILY/PO
     Route: 048
     Dates: start: 20040701, end: 20041120
  2. ACETAMINOPHEN [Suspect]
     Indication: PROPHYLAXIS
     Dosage: 325 MG /PRN/PO
     Route: 048
     Dates: start: 20040625, end: 20041120
  3. TAB PLACEBO [Suspect]
     Indication: OSTEOARTHRITIS
     Dosage: PO
     Route: 048
     Dates: start: 20040701, end: 20041120
  4. VIOXX [Suspect]
     Indication: OSTEOARTHRITIS
     Dosage: 15 MG/DAILY/PO
     Route: 048
     Dates: start: 20040201, end: 20040627
  5. EFFEXOR [Concomitant]
  6. TYLENOL ARTHRITIS EXTENDED RELIE [Concomitant]
  7. TYLENOL [Concomitant]

REACTIONS (1)
  - ATRIAL FIBRILLATION [None]
